FAERS Safety Report 10682970 (Version 1)
Quarter: 2014Q4

REPORT INFORMATION
  Report Type: Spontaneous
  Country: US (occurrence: US)
  Receive Date: 20141230
  Receipt Date: 20141230
  Transmission Date: 20150529
  Serious: Yes (Hospitalization)
  Sender: FDA-Public Use
  Company Number: US-JNJFOC-20141218901

PATIENT
  Age: 81 Year
  Sex: Male

DRUGS (13)
  1. LIPITOR [Concomitant]
     Active Substance: ATORVASTATIN CALCIUM
  2. DYAZIDE [Concomitant]
     Active Substance: HYDROCHLOROTHIAZIDE\TRIAMTERENE
  3. FERROUS SULFATE [Concomitant]
     Active Substance: FERROUS SULFATE\FERROUS SULFATE, DRIED
  4. MS CONTIN [Concomitant]
     Active Substance: MORPHINE SULFATE
  5. HYDROCODONE/ACETAMINOPHEN [Concomitant]
     Active Substance: ACETAMINOPHEN\HYDROCODONE
  6. LOPRESSOR [Concomitant]
     Active Substance: METOPROLOL TARTRATE
  7. PREDNISONE. [Concomitant]
     Active Substance: PREDNISONE
  8. IMBRUVICA [Suspect]
     Active Substance: IBRUTINIB
     Indication: CHRONIC LYMPHOCYTIC LEUKAEMIA
     Route: 048
     Dates: start: 20140304, end: 2014
  9. FUROSEMIDE. [Concomitant]
     Active Substance: FUROSEMIDE
  10. PRILOSEC [Concomitant]
     Active Substance: OMEPRAZOLE MAGNESIUM
  11. ALLOPURINOL. [Concomitant]
     Active Substance: ALLOPURINOL
  12. ISOSORBIDE [Concomitant]
     Active Substance: ISOSORBIDE
  13. RESTORIL [Concomitant]
     Active Substance: TEMAZEPAM

REACTIONS (1)
  - Gallbladder disorder [Unknown]

NARRATIVE: CASE EVENT DATE: 20141219
